FAERS Safety Report 24590674 (Version 1)
Quarter: 2024Q4

REPORT INFORMATION
  Report Type: Spontaneous
  Country: CN (occurrence: CN)
  Receive Date: 20241107
  Receipt Date: 20241107
  Transmission Date: 20250114
  Serious: Yes (Death)
  Sender: NOVARTIS
  Company Number: CN-002147023-NVSC2024CN215772

PATIENT
  Age: 62 Year
  Sex: Male

DRUGS (1)
  1. VOTRIENT [Suspect]
     Active Substance: PAZOPANIB HYDROCHLORIDE
     Indication: Renal cell carcinoma
     Dosage: 600 MG
     Route: 048
     Dates: start: 20200929

REACTIONS (1)
  - Death [Fatal]
